FAERS Safety Report 14841910 (Version 1)
Quarter: 2018Q2

REPORT INFORMATION
  Report Type: Spontaneous
  Country: US (occurrence: US)
  Receive Date: 20180503
  Receipt Date: 20180503
  Transmission Date: 20180711
  Serious: No
  Sender: FDA-Public Use
  Company Number: US-PFIZER INC-2018183109

PATIENT
  Age: 49 Year
  Sex: Male
  Weight: 179.14 kg

DRUGS (1)
  1. SUTENT [Suspect]
     Active Substance: SUNITINIB MALATE
     Indication: RENAL CELL CARCINOMA
     Dosage: 50 MG, CYCLIC (DAYS 1-28 Q 42 DAYS)
     Route: 048
     Dates: start: 20180217

REACTIONS (2)
  - Headache [Unknown]
  - Nausea [Unknown]
